FAERS Safety Report 7040294-X (Version None)
Quarter: 2010Q4

REPORT INFORMATION
  Report Type: 
  Country: None (occurrence: None)
  Receive Date: 20101012
  Receipt Date: 20101007
  Transmission Date: 20110411
  Serious: Yes (Other)
  Sender: FDA-Public Use
  Company Number: US-AMGEN-KDL444360

PATIENT
  Sex: Male
  Weight: 74.9 kg

DRUGS (3)
  1. PROCRIT [Suspect]
     Indication: ANAEMIA
     Route: 058
     Dates: end: 20100917
  2. PEGASYS [Concomitant]
     Route: 058
  3. RIBAVIRIN [Concomitant]
     Route: 048
     Dates: end: 20100917

REACTIONS (6)
  - FEELING ABNORMAL [None]
  - FURUNCLE [None]
  - INJECTION SITE PAIN [None]
  - INJECTION SITE SCAR [None]
  - VASCULITIS [None]
  - VEIN DISORDER [None]
